FAERS Safety Report 24406621 (Version 2)
Quarter: 2024Q4

REPORT INFORMATION
  Report Type: Spontaneous
  Country: US (occurrence: US)
  Receive Date: 20241007
  Receipt Date: 20241213
  Transmission Date: 20250115
  Serious: Yes (Hospitalization, Other)
  Sender: NOVARTIS
  Company Number: US-002147023-NVSC2024US196214

PATIENT
  Age: 81 Year
  Sex: Male

DRUGS (1)
  1. PLUVICTO [Suspect]
     Active Substance: LUTETIUM LU-177 VIPIVOTIDE TETRAXETAN
     Indication: Prostate cancer metastatic
     Dosage: 200 MCI, ONCE/SINGLE (EVERY 6 WEEKS FOR 6 WEEKS) (VIAL)
     Route: 042
     Dates: start: 20240822, end: 20240822

REACTIONS (1)
  - Hypocalcaemia [Not Recovered/Not Resolved]

NARRATIVE: CASE EVENT DATE: 20240904
